FAERS Safety Report 21052106 (Version 7)
Quarter: 2022Q4

REPORT INFORMATION
  Report Type: Spontaneous
  Country: US (occurrence: US)
  Receive Date: 20220707
  Receipt Date: 20221017
  Transmission Date: 20230113
  Serious: Yes (Hospitalization, Other)
  Sender: FDA-Public Use
  Company Number: US-BRISTOL-MYERS SQUIBB COMPANY-2022-052552

PATIENT
  Age: 77 Year
  Sex: Female

DRUGS (2)
  1. REVLIMID [Suspect]
     Active Substance: LENALIDOMIDE
     Indication: Plasma cell myeloma
     Dosage: 21/28 DAYS?1 CAPSULE BY MOUTH DAILY FOR 21 DAYS THEN 7 DAYS OFF OF A 28 DAY CYCLE
     Route: 048
     Dates: start: 20220323, end: 20220912
  2. REVLIMID [Suspect]
     Active Substance: LENALIDOMIDE
     Dosage: TAKE 1 CAPSULE BY MOUTH DAILY FOR 21 DAYS FOLLOWED BY 7 DAYS OFF OF A 28 DAY CYCLE
     Route: 048
     Dates: start: 20220323

REACTIONS (9)
  - Pneumonia [Unknown]
  - Urinary tract infection [Recovered/Resolved]
  - Body temperature abnormal [Recovered/Resolved]
  - Blood pressure abnormal [Recovered/Resolved]
  - Blood iron decreased [Recovered/Resolved]
  - Fatigue [Recovered/Resolved]
  - COVID-19 [Recovered/Resolved]
  - Anaemia [Unknown]
  - Hypoacusis [Recovered/Resolved]
